FAERS Safety Report 10213582 (Version 2)
Quarter: 2014Q3

REPORT INFORMATION
  Report Type: Spontaneous
  Country: US (occurrence: US)
  Receive Date: 20140603
  Receipt Date: 20140718
  Transmission Date: 20150326
  Serious: No
  Sender: FDA-Public Use
  Company Number: US-009507513-1406USA000406

PATIENT
  Sex: Male

DRUGS (2)
  1. SINGULAIR [Suspect]
     Active Substance: MONTELUKAST SODIUM
     Dosage: 10 MG, QD
     Route: 048
     Dates: start: 201405
  2. SINGULAIR [Suspect]
     Active Substance: MONTELUKAST SODIUM
     Indication: COLD URTICARIA
     Dosage: 10 MG, QD
     Route: 048
     Dates: start: 20140509, end: 20140520

REACTIONS (2)
  - Ageusia [Recovering/Resolving]
  - Off label use [Unknown]

NARRATIVE: CASE EVENT DATE: 201405
